FAERS Safety Report 9129750 (Version 1)
Quarter: 2013Q1

REPORT INFORMATION
  Report Type: Spontaneous
  Country: CH (occurrence: CH)
  Receive Date: 20130228
  Receipt Date: 20130228
  Transmission Date: 20140127
  Serious: Yes (Hospitalization)
  Sender: FDA-Public Use
  Company Number: CH-SANOFI-AVENTIS-2013SA017008

PATIENT
  Age: 72 Year
  Sex: Female

DRUGS (5)
  1. MULTAQ [Suspect]
     Indication: ATRIAL FIBRILLATION
     Route: 048
     Dates: start: 20130103, end: 20130110
  2. CORDARONE [Suspect]
     Indication: ATRIAL FIBRILLATION
     Route: 048
     Dates: start: 2008, end: 20121225
  3. PLAVIX [Concomitant]
     Route: 048
  4. ENATEC [Concomitant]
     Route: 048
  5. ATORVASTATIN CALCIUM [Concomitant]
     Route: 048

REACTIONS (4)
  - Pigmentation disorder [Unknown]
  - Hyperthyroidism [Unknown]
  - Interstitial lung disease [Recovering/Resolving]
  - Hepatocellular injury [Recovering/Resolving]
